FAERS Safety Report 17354173 (Version 1)
Quarter: 2020Q1

REPORT INFORMATION
  Report Type: Spontaneous
  Country: CZ (occurrence: CZ)
  Receive Date: 20200131
  Receipt Date: 20200131
  Transmission Date: 20200409
  Serious: Yes (Other)
  Sender: FDA-Public Use
  Company Number: CZ-ASTRAZENECA-2020SE13125

PATIENT

DRUGS (8)
  1. HELICID [OMEPRAZOLE] [Suspect]
     Active Substance: OMEPRAZOLE
     Route: 048
  2. SPIRIVA RESPIMAT [Suspect]
     Active Substance: TIOTROPIUM BROMIDE
     Route: 065
  3. SYMBICORT [Suspect]
     Active Substance: BUDESONIDE\FORMOTEROL FUMARATE DIHYDRATE
     Dosage: 4 DF, 2X/DAY OR 8 DF DAILY
     Route: 055
  4. MEPOLIZUMAB [Suspect]
     Active Substance: MEPOLIZUMAB
     Route: 058
     Dates: start: 20190819
  5. TAFEN [BUDESONIDE] [Suspect]
     Active Substance: BUDESONIDE
     Dosage: UNK, DAILY
     Route: 055
  6. BILASTINE [Suspect]
     Active Substance: BILASTINE
     Route: 065
  7. MONTELUKAST [Suspect]
     Active Substance: MONTELUKAST SODIUM
     Dosage: UNK, DAILY
     Route: 065
  8. MEDROL [Suspect]
     Active Substance: METHYLPREDNISOLONE
     Dosage: UNK, DAILY
     Route: 065

REACTIONS (1)
  - Transient ischaemic attack [Unknown]

NARRATIVE: CASE EVENT DATE: 20191203
